FAERS Safety Report 19573085 (Version 1)
Quarter: 2021Q3

REPORT INFORMATION
  Report Type: Spontaneous
  Country: BR (occurrence: BR)
  Receive Date: 20210716
  Receipt Date: 20210716
  Transmission Date: 20211014
  Serious: Yes (Hospitalization)
  Sender: FDA-Public Use
  Company Number: BR-BIOMARINAP-BR-2021-137516

PATIENT
  Age: 9 Year
  Sex: Female
  Weight: 18.66 kg

DRUGS (2)
  1. NAGLAZYME [Suspect]
     Active Substance: GALSULFASE
     Indication: MUCOPOLYSACCHARIDOSIS VI
     Dosage: UNK, QW
     Route: 042
     Dates: start: 20170112
  2. CLENIL [Concomitant]
     Active Substance: BECLOMETHASONE DIPROPIONATE
     Indication: PRODUCT USED FOR UNKNOWN INDICATION
     Dosage: 1 PUFF, BID

REACTIONS (5)
  - Constipation [Unknown]
  - Pain [Unknown]
  - Hip surgery [Recovered/Resolved]
  - Oedema genital [Unknown]
  - Injury [Unknown]

NARRATIVE: CASE EVENT DATE: 202003
